FAERS Safety Report 9298598 (Version 1)
Quarter: 2013Q2

REPORT INFORMATION
  Report Type: Spontaneous
  Country: US (occurrence: US)
  Receive Date: 20130520
  Receipt Date: 20130520
  Transmission Date: 20140414
  Serious: Yes (Hospitalization, Other)
  Sender: FDA-Public Use
  Company Number: US-PFIZER INC-2012052261

PATIENT
  Age: 39 Year
  Sex: Male

DRUGS (6)
  1. CHANTIX [Suspect]
     Dosage: STARTING PACK
     Route: 048
     Dates: start: 20070521
  2. CHANTIX [Suspect]
     Dosage: 1 MG, 2X/DAY
     Route: 048
     Dates: start: 20080208
  3. TRAZODONE [Concomitant]
     Dosage: 150 MG, 1X/DAY (AT BED TIME)
     Route: 048
     Dates: start: 20080811
  4. ZOLPIDEM [Concomitant]
     Dosage: 10 MG, 1X/DAY (BEDTIME)
     Route: 048
     Dates: start: 20080811
  5. HYDROXYZINE PAMOATE [Concomitant]
     Dosage: 50 MG, 3X/DAY
     Route: 048
     Dates: start: 20080812
  6. CYMBALTA [Concomitant]
     Dosage: 60 MG, 1X/DAY
     Route: 048
     Dates: start: 20080812

REACTIONS (1)
  - Suicidal ideation [Unknown]
